FAERS Safety Report 8021824-8 (Version None)
Quarter: 2011Q4

REPORT INFORMATION
  Report Type: 
  Country: None (occurrence: None)
  Receive Date: 20111229
  Receipt Date: 20111222
  Transmission Date: 20120403
  Serious: Yes (Other)
  Sender: FDA-Public Use
  Company Number: DSJ-2011-18727

PATIENT
  Age: 60 Year
  Sex: Female

DRUGS (5)
  1. ASPIRIN [Concomitant]
  2. BENICAR [Suspect]
     Indication: HYPERTENSION
     Dosage: 40 MG (40 MG, 1 IN 1 D), PER ORAL
     Route: 048
     Dates: start: 20100101
  3. OMEPRAZOLE [Concomitant]
  4. BENICAR HCT [Suspect]
     Indication: HYPERTENSION
     Dosage: 40/25 MG (1 IN 1 D), PER ORAL
     Route: 048
     Dates: start: 20080101
  5. VERAPAMIL [Concomitant]

REACTIONS (3)
  - HYPERGLYCAEMIA [None]
  - ARTERIOSCLEROSIS CORONARY ARTERY [None]
  - OVERDOSE [None]
